FAERS Safety Report 19186525 (Version 1)
Quarter: 2021Q2

REPORT INFORMATION
  Report Type: Report from Study
  Country: US (occurrence: US)
  Receive Date: 20210427
  Receipt Date: 20210427
  Transmission Date: 20210717
  Serious: No
  Sender: FDA-Public Use
  Company Number: US-INCYTE CORPORATION-2021IN002431

PATIENT

DRUGS (3)
  1. JAKAFI [Suspect]
     Active Substance: RUXOLITINIB
     Indication: POLYCYTHAEMIA VERA
     Route: 065
  2. JAKAFI [Suspect]
     Active Substance: RUXOLITINIB
     Dosage: REDUCED DOSE
     Route: 065
  3. HYDROXYUREA. [Suspect]
     Active Substance: HYDROXYUREA
     Indication: WEIGHT INCREASED
     Route: 065

REACTIONS (5)
  - Intentional product use issue [Unknown]
  - COVID-19 [Unknown]
  - Weight increased [Unknown]
  - Pruritus [Unknown]
  - Depression [Unknown]

NARRATIVE: CASE EVENT DATE: 202103
